FAERS Safety Report 10974571 (Version 1)
Quarter: 2015Q1

REPORT INFORMATION
  Report Type: Spontaneous
  Country: US (occurrence: None)
  Receive Date: 20150226
  Receipt Date: 20150226
  Transmission Date: 20150721
  Serious: No
  Sender: FDA-Public Use
  Company Number: TPA2010A00614

PATIENT
  Age: 54 Year
  Sex: Female
  Weight: 88.45 kg

DRUGS (2)
  1. ULORIC [Suspect]
     Active Substance: FEBUXOSTAT
     Indication: GOUT
     Dosage: 40 MG, 1 IN 1 D, PER ORAL
     Route: 048
     Dates: start: 20090608, end: 200910
  2. COLCHICINE. [Concomitant]
     Active Substance: COLCHICINE

REACTIONS (4)
  - Somnolence [None]
  - Dry mouth [None]
  - Insomnia [None]
  - Gout [None]

NARRATIVE: CASE EVENT DATE: 2009
